FAERS Safety Report 4613677-2 (Version None)
Quarter: 2005Q1

REPORT INFORMATION
  Report Type: 
  Country: None (occurrence: None)
  Receive Date: 20050321
  Receipt Date: 20050310
  Transmission Date: 20050727
  Serious: Yes (Hospitalization)
  Sender: FDA-Public Use
  Company Number: 200510776JP

PATIENT
  Age: 61 Year
  Sex: Male

DRUGS (10)
  1. KETEK [Suspect]
     Indication: BRONCHITIS
     Route: 048
     Dates: start: 20050303, end: 20050303
  2. AMARYL [Suspect]
     Indication: DIABETES MELLITUS
     Route: 048
  3. TAKEPRON [Concomitant]
     Indication: REFLUX OESOPHAGITIS
     Route: 048
     Dates: start: 20010227
  4. LIPITOR [Concomitant]
     Indication: HYPERLIPIDAEMIA
     Route: 048
     Dates: start: 20041015
  5. URSO 250 [Concomitant]
     Route: 048
  6. DORNER [Concomitant]
     Indication: ATHEROSCLEROSIS OBLITERANS
     Route: 048
     Dates: start: 20050121
  7. CLOTAM [Concomitant]
     Indication: BRONCHITIS
     Route: 048
     Dates: start: 20050303
  8. ASTOMIN [Concomitant]
     Indication: BRONCHITIS
     Route: 048
     Dates: start: 20500303
  9. BROAMI [Concomitant]
     Indication: BRONCHITIS
     Route: 048
     Dates: start: 20050303
  10. CELESTAMINE TAB [Concomitant]
     Indication: BRONCHITIS
     Route: 048
     Dates: start: 20050303

REACTIONS (6)
  - ASTHENIA [None]
  - BRONCHITIS [None]
  - DEHYDRATION [None]
  - HYPOGLYCAEMIA [None]
  - LOSS OF CONSCIOUSNESS [None]
  - PYREXIA [None]
